FAERS Safety Report 6511663-9 (Version None)
Quarter: 2009Q4

REPORT INFORMATION
  Report Type: 
  Country: None (occurrence: None)
  Receive Date: 20091222
  Receipt Date: 20090507
  Transmission Date: 20100525
  Serious: No
  Sender: FDA-Public Use
  Company Number: US-ASTRAZENECA-2009UW11650

PATIENT
  Age: 23575 Day
  Sex: Female
  Weight: 52.6 kg

DRUGS (1)
  1. CRESTOR [Suspect]
     Route: 048

REACTIONS (9)
  - BACK PAIN [None]
  - DIZZINESS [None]
  - DRY MOUTH [None]
  - EAR PAIN [None]
  - EYE PAIN [None]
  - GAIT DISTURBANCE [None]
  - HEADACHE [None]
  - LYMPHADENOPATHY [None]
  - OROPHARYNGEAL PAIN [None]
